FAERS Safety Report 9206777 (Version 1)
Quarter: 2013Q1

REPORT INFORMATION
  Report Type: Spontaneous
  Country: US (occurrence: None)
  Receive Date: 20120713
  Receipt Date: 20120713
  Transmission Date: 20140127
  Serious: No
  Sender: FDA-Public Use
  Company Number: PHEH2012US010975

PATIENT
  Age: 8 Year
  Sex: Female

DRUGS (1)
  1. ILARIS [Suspect]

REACTIONS (5)
  - Seasonal allergy [None]
  - Rash [None]
  - Urticaria [None]
  - Cough [None]
  - Cold sweat [None]
